FAERS Safety Report 23539614 (Version 1)
Quarter: 2024Q1

REPORT INFORMATION
  Report Type: Spontaneous
  Country: US (occurrence: US)
  Receive Date: 20240219
  Receipt Date: 20240219
  Transmission Date: 20240410
  Serious: Yes (Life-Threatening, Other)
  Sender: FDA-Public Use
  Company Number: US-BRACCO-2023US06367

PATIENT
  Age: 66 Year
  Sex: Male

DRUGS (1)
  1. ISOVUE 370 [Suspect]
     Active Substance: IOPAMIDOL
     Indication: Computerised tomogram abdomen
     Dosage: 120 ML, SINGLE
     Route: 042
     Dates: start: 20231126, end: 20231126

REACTIONS (3)
  - Anaphylactic shock [Recovering/Resolving]
  - Cardiac arrest [Recovered/Resolved]
  - Acute respiratory failure [Recovering/Resolving]

NARRATIVE: CASE EVENT DATE: 20231126
